FAERS Safety Report 9363921 (Version 2)
Quarter: 2013Q3

REPORT INFORMATION
  Report Type: Spontaneous
  Country: JP (occurrence: JP)
  Receive Date: 20130624
  Receipt Date: 20130813
  Transmission Date: 20140515
  Serious: Yes (Hospitalization, Other)
  Sender: FDA-Public Use
  Company Number: JP-PFIZER INC-2013187272

PATIENT
  Age: 66 Year
  Sex: Male

DRUGS (2)
  1. LIPITOR [Suspect]
     Indication: HYPERLIPIDAEMIA
     Dosage: 10 MG, 1X/DAY
     Route: 048
     Dates: end: 20130612
  2. AMLODIN [Concomitant]
     Indication: HYPERTENSION
     Dosage: UNK
     Dates: end: 20130612

REACTIONS (4)
  - Blood creatine phosphokinase increased [Recovered/Resolved]
  - Blood lactate dehydrogenase increased [Unknown]
  - Brain neoplasm [Unknown]
  - Hepatic function abnormal [Unknown]
